FAERS Safety Report 7788101-1 (Version None)
Quarter: 2011Q3

REPORT INFORMATION
  Report Type: 
  Country: None (occurrence: None)
  Receive Date: 20110929
  Receipt Date: 20110929
  Transmission Date: 20111222
  Serious: No
  Sender: FDA-Public Use
  Company Number: None

PATIENT
  Age: 76 Year
  Sex: Female
  Weight: 90.7194 kg

DRUGS (1)
  1. SENSODYNE-F [Suspect]
     Dosage: 2X DAY

REACTIONS (2)
  - ORAL PAIN [None]
  - INSOMNIA [None]
